FAERS Safety Report 12265332 (Version 13)
Quarter: 2017Q1

REPORT INFORMATION
  Report Type: Report from Study
  Country: AT (occurrence: AT)
  Receive Date: 20160413
  Receipt Date: 20170214
  Transmission Date: 20170428
  Serious: Yes (Death, Hospitalization, Other)
  Sender: FDA-Public Use
  Company Number: AT-INCYTE CORPORATION-2014IN000979

PATIENT
  Age: 66 Year
  Sex: Male
  Weight: 81 kg

DRUGS (10)
  1. ZOLDEM [Concomitant]
     Active Substance: ZOLPIDEM TARTRATE
     Indication: PRODUCT USED FOR UNKNOWN INDICATION
     Dosage: 10 MG, UNK
     Route: 065
  2. JAKAVI [Suspect]
     Active Substance: RUXOLITINIB
     Dosage: 20 MG, QD
     Route: 048
     Dates: start: 20160503
  3. JAKAVI [Suspect]
     Active Substance: RUXOLITINIB
     Dosage: 40 MG, UNK
     Route: 048
     Dates: start: 20150121
  4. SIRDALUD [Concomitant]
     Active Substance: TIZANIDINE
     Indication: PRODUCT USED FOR UNKNOWN INDICATION
     Dosage: 4 MG, UNK
     Route: 065
  5. LYRICA [Concomitant]
     Active Substance: PREGABALIN
     Indication: PRODUCT USED FOR UNKNOWN INDICATION
     Dosage: 100 MG, UNK
     Route: 065
  6. LYRICA [Concomitant]
     Active Substance: PREGABALIN
     Dosage: 2 DF, BID
  7. ZOLDEM [Concomitant]
     Active Substance: ZOLPIDEM TARTRATE
     Dosage: 1 DF, QD
  8. JAKAVI [Suspect]
     Active Substance: RUXOLITINIB
     Indication: MYELOFIBROSIS
     Dosage: UNK
     Route: 048
     Dates: start: 20110817
  9. SIRDALUD [Concomitant]
     Active Substance: TIZANIDINE
     Dosage: 1 DF, QD
  10. JAKAVI [Suspect]
     Active Substance: RUXOLITINIB
     Dosage: 40 MG, QD
     Route: 048
     Dates: start: 20140214

REACTIONS (32)
  - Squamous cell carcinoma [Recovered/Resolved with Sequelae]
  - Squamous cell carcinoma [Recovered/Resolved with Sequelae]
  - Ear pain [Recovering/Resolving]
  - Recurrent cancer [Recovered/Resolved with Sequelae]
  - Squamous cell carcinoma [Recovered/Resolved with Sequelae]
  - Metastasis [Unknown]
  - Depressed mood [Unknown]
  - Basophil count increased [Unknown]
  - Constipation [Recovering/Resolving]
  - Second primary malignancy [Not Recovered/Not Resolved]
  - Squamous cell carcinoma [Recovered/Resolved with Sequelae]
  - Squamous cell carcinoma [Recovered/Resolved with Sequelae]
  - Pharyngeal haematoma [Recovered/Resolved]
  - Nausea [Unknown]
  - Gastrooesophageal reflux disease [Unknown]
  - Nervousness [Unknown]
  - Differential white blood cell count abnormal [Unknown]
  - Squamous cell carcinoma [Recovered/Resolved]
  - Bone erosion [Not Recovered/Not Resolved]
  - Gastritis [Unknown]
  - Lymphocyte count increased [Unknown]
  - Polycythaemia vera [Unknown]
  - Hyperhidrosis [Unknown]
  - Squamous cell carcinoma [Fatal]
  - Myelofibrosis [Unknown]
  - Otitis externa [Unknown]
  - Decreased appetite [Recovering/Resolving]
  - Anxiety [Unknown]
  - Squamous cell carcinoma [Recovered/Resolved with Sequelae]
  - Post herpetic neuralgia [Unknown]
  - Metastases to muscle [Unknown]
  - Neutrophil count increased [Unknown]

NARRATIVE: CASE EVENT DATE: 20131230
